FAERS Safety Report 11650284 (Version 1)
Quarter: 2015Q4

REPORT INFORMATION
  Report Type: Report from Study
  Country: FR (occurrence: FR)
  Receive Date: 20151021
  Receipt Date: 20151021
  Transmission Date: 20160304
  Serious: Yes (Death, Hospitalization)
  Sender: FDA-Public Use
  Company Number: FR-009507513-1510FRA006922

PATIENT
  Age: 59 Year
  Sex: Female

DRUGS (6)
  1. CORTANCYL [Concomitant]
     Active Substance: PREDNISONE
     Indication: PAIN
     Dosage: UNK
     Route: 048
     Dates: start: 201506
  2. OXYNORM [Concomitant]
     Active Substance: OXYCODONE HYDROCHLORIDE
     Indication: PAIN
     Dosage: 10 MG, QD
     Route: 048
     Dates: start: 201506
  3. LYRICA [Concomitant]
     Active Substance: PREGABALIN
     Indication: PAIN
     Dosage: 150 MG-100 MG-50 MG QD MORNING-NOON-EVENING
     Route: 048
     Dates: start: 201506
  4. DIFFU-K [Concomitant]
     Active Substance: POTASSIUM CHLORIDE
     Dosage: UNK
     Route: 048
     Dates: start: 201506
  5. PEMBROLIZUMAB. [Suspect]
     Active Substance: PEMBROLIZUMAB
     Indication: METASTATIC MALIGNANT MELANOMA
     Dosage: 2 MG/KG (120 MG), Q3W
     Route: 042
     Dates: start: 20150721, end: 20150811
  6. OXYCONTIN [Concomitant]
     Active Substance: OXYCODONE HYDROCHLORIDE
     Indication: PAIN
     Dosage: 20 MG, BID
     Route: 048
     Dates: start: 201506

REACTIONS (3)
  - Hypophysitis [Unknown]
  - Hepatitis [Unknown]
  - Malignant neoplasm progression [Fatal]

NARRATIVE: CASE EVENT DATE: 20150828
